FAERS Safety Report 8055620-2 (Version None)
Quarter: 2012Q1

REPORT INFORMATION
  Report Type: 
  Country: None (occurrence: None)
  Receive Date: 20120119
  Receipt Date: 20120111
  Transmission Date: 20120608
  Serious: Yes (Other)
  Sender: FDA-Public Use
  Company Number: US-JNJFOC-20120105606

PATIENT
  Age: 2 Year
  Sex: Male
  Weight: 13.61 kg

DRUGS (2)
  1. PEPCID COMPLETE [Suspect]
     Indication: ACCIDENTAL EXPOSURE
     Route: 048
  2. PEPCID COMPLETE [Suspect]
     Route: 048

REACTIONS (3)
  - ACCIDENTAL DRUG INTAKE BY CHILD [None]
  - PSYCHOMOTOR HYPERACTIVITY [None]
  - ACCIDENTAL OVERDOSE [None]
